FAERS Safety Report 10751991 (Version 6)
Quarter: 2015Q4

REPORT INFORMATION
  Report Type: Report from Study
  Country: JP (occurrence: JP)
  Receive Date: 20150130
  Receipt Date: 20151015
  Transmission Date: 20160304
  Serious: Yes (Hospitalization)
  Sender: FDA-Public Use
  Company Number: JP-MERCK-1112USA01580

PATIENT
  Age: 58 Year
  Sex: Male
  Weight: 61 kg

DRUGS (5)
  1. AMARYL [Suspect]
     Active Substance: GLIMEPIRIDE
     Indication: TYPE 2 DIABETES MELLITUS
     Dosage: 1.5 MG, BID
     Route: 048
     Dates: start: 20091203, end: 20100929
  2. DIBETOS [Suspect]
     Active Substance: BUFORMIN
     Indication: TYPE 2 DIABETES MELLITUS
     Dosage: 75 MG, BID
     Route: 048
     Dates: start: 20100323, end: 20120130
  3. JANUVIA [Suspect]
     Active Substance: SITAGLIPTIN PHOSPHATE
     Indication: TYPE 2 DIABETES MELLITUS
     Dosage: 50 MG, QD
     Route: 048
     Dates: start: 20100902, end: 20130705
  4. AMARYL [Suspect]
     Active Substance: GLIMEPIRIDE
     Dosage: 1 MG, BID
     Route: 048
     Dates: start: 20100930, end: 20111205
  5. AMARYL [Suspect]
     Active Substance: GLIMEPIRIDE
     Dosage: 2 MG, BID
     Route: 048
     Dates: start: 20111206

REACTIONS (4)
  - Anxiety disorder [Recovering/Resolving]
  - Pneumothorax [Recovered/Resolved]
  - Diabetes mellitus inadequate control [Recovering/Resolving]
  - Glycosylated haemoglobin increased [Recovering/Resolving]

NARRATIVE: CASE EVENT DATE: 20110506
